FAERS Safety Report 5564998-0 (Version None)
Quarter: 2007Q4

REPORT INFORMATION
  Report Type: 
  Country: None (occurrence: None)
  Receive Date: 20071212
  Receipt Date: 20071128
  Transmission Date: 20080405
  Serious: Yes (Death)
  Sender: FDA-Public Use
  Company Number: 2006S1000223

PATIENT
  Age: 10 Year
  Sex: Female

DRUGS (3)
  1. CUBICIN [Suspect]
     Indication: PYREXIA
     Dosage: 4 MG/KG; Q48H;
  2. CUBICIN [Suspect]
     Indication: URINARY TRACT INFECTION ENTEROCOCCAL
     Dosage: 4 MG/KG; Q48H;
  3. VANCOMYCIN [Concomitant]

REACTIONS (4)
  - COAGULOPATHY [None]
  - GASTROINTESTINAL HAEMORRHAGE [None]
  - HEPATIC CIRRHOSIS [None]
  - PULMONARY HAEMORRHAGE [None]
